FAERS Safety Report 9897407 (Version 3)
Quarter: 2014Q2

REPORT INFORMATION
  Report Type: Spontaneous
  Country: GB (occurrence: GB)
  Receive Date: 20140214
  Receipt Date: 20140506
  Transmission Date: 20141212
  Serious: Yes (Hospitalization, Other)
  Sender: FDA-Public Use
  Company Number: GB-JNJFOC-20140203566

PATIENT
  Age: 40 Year
  Sex: Female

DRUGS (3)
  1. RISPERDAL CONSTA [Suspect]
     Indication: SCHIZOPHRENIA
     Route: 030
  2. RISPERDAL CONSTA [Suspect]
     Indication: SCHIZOPHRENIA
     Route: 030
  3. RISPERDAL CONSTA [Suspect]
     Indication: SCHIZOPHRENIA
     Dosage: 25 MG - 37.5 MG
     Route: 030

REACTIONS (14)
  - Renal injury [Unknown]
  - Haematemesis [Unknown]
  - Local swelling [Unknown]
  - Swelling face [Unknown]
  - Restless legs syndrome [Unknown]
  - Dizziness [Unknown]
  - Peripheral swelling [Unknown]
  - Joint swelling [Unknown]
  - Vision blurred [Unknown]
  - Musculoskeletal stiffness [Unknown]
  - Nausea [Unknown]
  - Nightmare [Unknown]
  - Insomnia [Unknown]
  - Depressed mood [Unknown]
